FAERS Safety Report 8169416-4 (Version None)
Quarter: 2012Q1

REPORT INFORMATION
  Report Type: 
  Country: None (occurrence: None)
  Receive Date: 20120228
  Receipt Date: 20120215
  Transmission Date: 20120608
  Serious: Yes (Other)
  Sender: FDA-Public Use
  Company Number: TR-TEVA-323329ISR

PATIENT
  Age: 52 Year
  Sex: Male
  Weight: 98 kg

DRUGS (1)
  1. ETOPOSIDE [Suspect]
     Dosage: DAILY DOSE: 60-120MG/M^2, FREQUENCY: 5 DAYS
     Route: 042
     Dates: start: 20120112

REACTIONS (2)
  - COUGH [None]
  - RESPIRATORY DISTRESS [None]
